FAERS Safety Report 19084572 (Version 1)
Quarter: 2021Q2

REPORT INFORMATION
  Report Type: Spontaneous
  Country: US (occurrence: US)
  Receive Date: 20210401
  Receipt Date: 20210401
  Transmission Date: 20210717
  Serious: No
  Sender: FDA-Public Use
  Company Number: US-IBSA PHARMA-2021-IBS-00298

PATIENT
  Age: 69 Year
  Weight: 97 kg

DRUGS (1)
  1. FLECTOR [Suspect]
     Active Substance: DICLOFENAC EPOLAMINE
     Indication: BACK PAIN
     Route: 061

REACTIONS (3)
  - Insomnia [Unknown]
  - Intentional device misuse [Unknown]
  - Drug ineffective [Not Recovered/Not Resolved]
